FAERS Safety Report 20592859 (Version 1)
Quarter: 2022Q1

REPORT INFORMATION
  Report Type: Report from Study
  Country: BR (occurrence: BR)
  Receive Date: 20220315
  Receipt Date: 20220315
  Transmission Date: 20220423
  Serious: Yes (Disabling, Other)
  Sender: FDA-Public Use
  Company Number: BR-ABBVIE-22K-020-4266148-00

PATIENT
  Sex: Male
  Weight: 90 kg

DRUGS (5)
  1. HUMIRA [Suspect]
     Active Substance: ADALIMUMAB
     Indication: Rheumatoid arthritis
     Route: 058
     Dates: start: 2006, end: 2021
  2. HUMIRA [Suspect]
     Active Substance: ADALIMUMAB
     Route: 058
     Dates: start: 2021, end: 20211217
  3. HUMIRA [Suspect]
     Active Substance: ADALIMUMAB
     Route: 058
     Dates: start: 202202
  4. ARAVA [Suspect]
     Active Substance: LEFLUNOMIDE
     Indication: Product used for unknown indication
     Route: 065
  5. METHOTREXATE [Suspect]
     Active Substance: METHOTREXATE
     Indication: Product used for unknown indication
     Route: 065

REACTIONS (15)
  - Hip arthroplasty [Unknown]
  - Impaired self-care [Unknown]
  - Joint range of motion decreased [Unknown]
  - Limb injury [Unknown]
  - Joint warmth [Unknown]
  - Feeling hot [Unknown]
  - Joint injury [Recovering/Resolving]
  - Arthropathy [Unknown]
  - Hepatitis [Recovering/Resolving]
  - Pain in extremity [Unknown]
  - Peripheral swelling [Unknown]
  - Bone pain [Unknown]
  - Pyrexia [Unknown]
  - Rheumatoid arthritis [Unknown]
  - Drug ineffective [Unknown]

NARRATIVE: CASE EVENT DATE: 20200101
